FAERS Safety Report 9578318 (Version 2)
Quarter: 2013Q4

REPORT INFORMATION
  Report Type: Spontaneous
  Country: US (occurrence: US)
  Receive Date: 20131001
  Receipt Date: 20131001
  Transmission Date: 20140711
  Serious: No
  Sender: FDA-Public Use
  Company Number: US-AMGEN-USASP2013010799

PATIENT
  Age: 43 Year
  Sex: Male
  Weight: 92.52 kg

DRUGS (19)
  1. ENBREL [Suspect]
     Indication: PSORIATIC ARTHROPATHY
     Dosage: 50 MG, QWK
     Dates: start: 20121023
  2. PREDNISONE [Concomitant]
     Dosage: UNK
  3. ASPIRIN [Concomitant]
     Dosage: 81 MG, BID
     Route: 048
  4. ATORVASTATIN CALCIUM [Concomitant]
     Dosage: 80 MG, 1 TABLET ONCE A DAY
     Route: 048
     Dates: start: 20120118
  5. BETAMETHASONE DIPROPIONATE [Concomitant]
     Dosage: 0.05 %, BID
     Dates: start: 20121120
  6. CALCIPOTRIENE [Concomitant]
     Dosage: 0.005 %, BID
     Dates: start: 20121120
  7. CLOBETASOL PROPIONATE [Concomitant]
     Dosage: 0.05 %, QD
     Dates: start: 20120529
  8. STOOL SOFTENER [Concomitant]
     Dosage: 100 MG, TWICE DAILY AS NEEDED
     Route: 048
     Dates: start: 20120625
  9. DERMA SMOOTH FS [Concomitant]
     Dosage: 0.01 %, UNK
     Dates: start: 20120529
  10. ETODOLAC [Concomitant]
     Dosage: 400 MG, 1 TABLET TWICE DAILY WITH MEALS
     Route: 048
     Dates: start: 20121019
  11. EUCERIN                            /00021201/ [Concomitant]
     Dosage: UNK, TWICE DAILY TO GRAFT
     Dates: start: 20120707
  12. GABAPENTIN [Concomitant]
     Dosage: 100 MG , 2 CAPSULES 3 TIMES A DAY
     Route: 048
     Dates: start: 20121031
  13. JANUVIA [Concomitant]
     Dosage: 100 MG, 1 TABLET DAILY
     Route: 048
     Dates: start: 20120611
  14. LISINOPRIL [Concomitant]
     Dosage: 10 MG,  1 TABLET DAILY
     Route: 048
     Dates: start: 20111212
  15. METFORMIN HCL [Concomitant]
     Dosage: 1500 MG, 3 TABLETS DAILY
     Route: 048
     Dates: start: 20100726
  16. MULTIVITAMINS, PLAIN [Concomitant]
     Dosage: UNK UNK, 1 TABLET DAILY
     Route: 048
     Dates: start: 20120611
  17. MULTIPLE VITAMINS [Concomitant]
     Dosage: UNK
     Route: 048
  18. TRAZODONE HCL [Concomitant]
     Dosage: 150 MG, 1 TABLET AT BED TIME
     Dates: start: 20110118
  19. VITAMIN D                          /00107901/ [Concomitant]
     Dosage: 400 UNIT, 1 CAPSULE DAILY
     Route: 048
     Dates: start: 20120611

REACTIONS (2)
  - Face oedema [Recovered/Resolved]
  - Weight increased [Not Recovered/Not Resolved]
